FAERS Safety Report 9402296 (Version 1)
Quarter: 2013Q3

REPORT INFORMATION
  Report Type: Spontaneous
  Country: CN (occurrence: CN)
  Receive Date: 20130716
  Receipt Date: 20130716
  Transmission Date: 20140515
  Serious: Yes (Other)
  Sender: FDA-Public Use
  Company Number: CN-BAXTER-2013BAX026693

PATIENT
  Age: 33 Year
  Sex: Female
  Weight: 46 kg

DRUGS (1)
  1. 20% MANNITOL INJECTION [Suspect]
     Indication: INTERVERTEBRAL DISC PROTRUSION
     Route: 041
     Dates: start: 20121102, end: 20121102

REACTIONS (1)
  - Palpitations [Recovered/Resolved]
